FAERS Safety Report 20647725 (Version 1)
Quarter: 2022Q1

REPORT INFORMATION
  Report Type: Spontaneous
  Country: US (occurrence: US)
  Receive Date: 20220329
  Receipt Date: 20220329
  Transmission Date: 20220423
  Serious: No
  Sender: FDA-Public Use
  Company Number: US-ALKERMES INC.-ALK-2022-001376

PATIENT
  Age: 47 Year
  Sex: Male

DRUGS (7)
  1. LYBALVI [Suspect]
     Active Substance: OLANZAPINE\SAMIDORPHAN L-MALATE
     Indication: Schizophrenia
     Dosage: 5/10, MILLIGRAM, QD
     Route: 048
     Dates: start: 20220320, end: 20220321
  2. ZYPREXA [Concomitant]
     Active Substance: OLANZAPINE
     Indication: Schizophrenia
     Dosage: 10 MILLIGRAM, BID
     Route: 065
  3. ZYPREXA [Concomitant]
     Active Substance: OLANZAPINE
     Dosage: 5 MILLIGRAM, QD
     Route: 065
  4. ZYPREXA [Concomitant]
     Active Substance: OLANZAPINE
     Dosage: 10 MILLIGRAM, BID
     Route: 065
  5. UNSPECIFIED INGREDIENT [Concomitant]
     Active Substance: UNSPECIFIED INGREDIENT
     Indication: Schizophrenia
     Dosage: UNK
     Route: 065
  6. UNSPECIFIED INGREDIENT [Concomitant]
     Active Substance: UNSPECIFIED INGREDIENT
     Indication: Schizophrenia
     Dosage: UNK
     Route: 065
  7. PROLIXIN DECANOATE [Concomitant]
     Active Substance: FLUPHENAZINE DECANOATE
     Indication: Product used for unknown indication
     Dosage: 35 MILLIGRAM
     Route: 065

REACTIONS (5)
  - Balance disorder [Not Recovered/Not Resolved]
  - Gait disturbance [Not Recovered/Not Resolved]
  - Sedation [Not Recovered/Not Resolved]
  - Dysarthria [Not Recovered/Not Resolved]
  - Speech disorder [Not Recovered/Not Resolved]

NARRATIVE: CASE EVENT DATE: 20220321
